FAERS Safety Report 8967297 (Version 1)
Quarter: 2012Q4

REPORT INFORMATION
  Report Type: 
  Country: US (occurrence: US)
  Receive Date: 20121214
  Receipt Date: 20121214
  Transmission Date: 20130627
  Serious: No
  Sender: FDA-Public Use
  Company Number: US-GLAXOSMITHKLINE-A0983767A

PATIENT
  Age: 52 Year
  Sex: Female

DRUGS (6)
  1. FLONASE [Suspect]
     Indication: BRONCHITIS
     Dosage: 1APP Per day
     Route: 045
     Dates: start: 20120606, end: 20120606
  2. ADVAIR [Suspect]
     Indication: BRONCHITIS
     Dosage: 1PUFF Twice per day
     Route: 055
     Dates: start: 20120703, end: 20120705
  3. ATENOLOL [Concomitant]
  4. XANAX [Concomitant]
  5. DEXAMETHASONE [Concomitant]
  6. AMILORIDE + HYDROCHLOROTHIAZIDE [Concomitant]

REACTIONS (8)
  - Dyspnoea [Recovering/Resolving]
  - Cough [Recovering/Resolving]
  - Dizziness [Recovering/Resolving]
  - Muscle spasms [Recovering/Resolving]
  - Vision blurred [Recovering/Resolving]
  - Tremor [Recovering/Resolving]
  - Vaginal discharge [Recovering/Resolving]
  - Blood pressure increased [Recovering/Resolving]
